FAERS Safety Report 9741128 (Version 2)
Quarter: 2014Q1

REPORT INFORMATION
  Report Type: Spontaneous
  Country: US (occurrence: US)
  Receive Date: 20131209
  Receipt Date: 20140107
  Transmission Date: 20141002
  Serious: No
  Sender: FDA-Public Use
  Company Number: US-GILEAD-2013-0089498

PATIENT
  Age: 37 Year
  Sex: Female

DRUGS (4)
  1. LETAIRIS [Suspect]
     Indication: PRODUCT USED FOR UNKNOWN INDICATION
     Dosage: 5 MG, QD
     Dates: start: 20130820
  2. REVATIO [Concomitant]
  3. WARFARIN SODIUM [Concomitant]
  4. FLOLAN [Concomitant]

REACTIONS (2)
  - Upper respiratory tract infection [Unknown]
  - Medical device complication [Unknown]
